FAERS Safety Report 13660395 (Version 1)
Quarter: 2017Q2

REPORT INFORMATION
  Report Type: Spontaneous
  Country: US (occurrence: US)
  Receive Date: 20170616
  Receipt Date: 20170616
  Transmission Date: 20170830
  Serious: No
  Sender: FDA-Public Use
  Company Number: US-FDC LIMITED-2016RIS00211

PATIENT
  Sex: Female
  Weight: 64.85 kg

DRUGS (4)
  1. SYSTANE (HYPROMELLOSE 2910 (4000 MPA.S)) [Suspect]
     Active Substance: HYPROMELLOSE 2910 (4000 MPA.S)
  2. RESTASIS [Concomitant]
     Active Substance: CYCLOSPORINE
  3. TIMOLOL. [Suspect]
     Active Substance: TIMOLOL
     Indication: GLAUCOMA
     Dosage: 1 DROP, 4X/DAY IN BOTH EYES
     Route: 047
  4. ^BRIMONED^ [Concomitant]

REACTIONS (2)
  - Eye pain [Not Recovered/Not Resolved]
  - Pain in extremity [Not Recovered/Not Resolved]

NARRATIVE: CASE EVENT DATE: 20150303
